FAERS Safety Report 18396968 (Version 1)
Quarter: 2020Q4

REPORT INFORMATION
  Report Type: Spontaneous
  Country: US (occurrence: US)
  Receive Date: 20201018
  Receipt Date: 20201018
  Transmission Date: 20210114
  Serious: Yes (Other)
  Sender: FDA-Public Use
  Company Number: None

PATIENT
  Age: 70 Year
  Sex: Female
  Weight: 109 kg

DRUGS (22)
  1. REMDESIVIR. [Suspect]
     Active Substance: REMDESIVIR
     Indication: COVID-19 PNEUMONIA
     Route: 040
     Dates: start: 20201014, end: 20201016
  2. FAMOTIDINE. [Concomitant]
     Active Substance: FAMOTIDINE
     Dates: start: 20201014
  3. PIPERACILLIN/TAZOBACTAM [Concomitant]
     Active Substance: PIPERACILLIN SODIUM\TAZOBACTAM SODIUM
     Dates: start: 20201014
  4. DIGOXIN. [Concomitant]
     Active Substance: DIGOXIN
     Dates: start: 20201014, end: 20201014
  5. NOREPINEPHRINE. [Concomitant]
     Active Substance: NOREPINEPHRINE
     Dates: start: 20201014
  6. ALBUMIN 25% [Concomitant]
     Active Substance: ALBUMIN HUMAN
     Dates: start: 20201016, end: 20201017
  7. ALBUTEROL NEBULIZER [Concomitant]
     Active Substance: ALBUTEROL
     Dates: start: 20201014
  8. ASPIRIN. [Concomitant]
     Active Substance: ASPIRIN
     Dates: start: 20201016
  9. IPRATROPIUM/ALBUTEROL NEBULIZED [Concomitant]
     Dates: start: 20201014
  10. FENTANYL INFUSION [Concomitant]
     Active Substance: FENTANYL
     Dates: start: 20201014
  11. INSULIN GLARGINE [Concomitant]
     Active Substance: INSULIN GLARGINE
     Dates: start: 20201014
  12. ROCURONIUM INFUSION [Concomitant]
     Dates: start: 20201017
  13. ACETAMINOPHEN. [Concomitant]
     Active Substance: ACETAMINOPHEN
     Dates: start: 20201014, end: 20201014
  14. CALCIUM GLUCONATE. [Concomitant]
     Active Substance: CALCIUM GLUCONATE
     Dates: start: 20201015, end: 20201015
  15. HEPARIN INFUSION [Concomitant]
     Dates: start: 20201015
  16. INSULIN LISPRO [Concomitant]
     Active Substance: INSULIN LISPRO
     Dates: start: 20201014
  17. DEXAMETHASONE. [Concomitant]
     Active Substance: DEXAMETHASONE
     Dates: start: 20201014
  18. ENOXAPARIN [Concomitant]
     Active Substance: ENOXAPARIN
     Dates: start: 20201014, end: 20201015
  19. EPOPROSTENOL INHALED [Concomitant]
     Dates: start: 20201017
  20. FUROSEMIDE. [Concomitant]
     Active Substance: FUROSEMIDE
     Dates: start: 20201017
  21. VANCOMYCIN [Concomitant]
     Active Substance: VANCOMYCIN
     Dates: start: 20201014, end: 20201016
  22. PROPOFOL. [Concomitant]
     Active Substance: PROPOFOL
     Dates: start: 20201014

REACTIONS (2)
  - Aspartate aminotransferase increased [None]
  - Alanine aminotransferase increased [None]

NARRATIVE: CASE EVENT DATE: 20201016
